FAERS Safety Report 5726554-0 (Version None)
Quarter: 2008Q2

REPORT INFORMATION
  Report Type: 
  Country: None (occurrence: None)
  Receive Date: 20080502
  Receipt Date: 20080501
  Transmission Date: 20081010
  Serious: Yes (Death, Hospitalization)
  Sender: FDA-Public Use
  Company Number: GR-RB-000923-08

PATIENT
  Age: 42 Year
  Sex: Male

DRUGS (2)
  1. SUBUTEX [Suspect]
     Indication: DRUG DEPENDENCE
     Dosage: 80MG WEEKLY. SIX DAYS PER WEEK HE TOOK 12MG AND ONE DAY PER WEEK HE TOOK 8MG
     Route: 048
     Dates: start: 20060101
  2. HEROIN [Concomitant]
     Indication: DRUG DEPENDENCE
     Dosage: DOSE UNKNOWN

REACTIONS (4)
  - ENDOCARDITIS [None]
  - INCORRECT ROUTE OF DRUG ADMINISTRATION [None]
  - SEPTIC SHOCK [None]
  - SUBSTANCE ABUSE [None]
